FAERS Safety Report 8189418-1 (Version None)
Quarter: 2012Q1

REPORT INFORMATION
  Report Type: 
  Country: None (occurrence: None)
  Receive Date: 20120302
  Receipt Date: 20120220
  Transmission Date: 20120608
  Serious: Yes (Other)
  Sender: FDA-Public Use
  Company Number: MY-1190681

PATIENT
  Age: 2 Month
  Sex: Female
  Weight: 1.3 kg

DRUGS (4)
  1. FERRIC AMMONIUM CITRATE [Concomitant]
  2. CYCLOMYDRIL [Suspect]
     Indication: EYE LASER SURGERY
     Dosage: (1 GTT OPHTHALMIC)
     Route: 047
     Dates: start: 20110407, end: 20110407
  3. CAFFEINE CITRATE [Concomitant]
  4. CHLOROTHIAZIDE [Concomitant]

REACTIONS (2)
  - ABDOMINAL DISTENSION [None]
  - APNOEA [None]
